FAERS Safety Report 20785568 (Version 1)
Quarter: 2022Q2

REPORT INFORMATION
  Report Type: Spontaneous
  Country: US (occurrence: None)
  Receive Date: 20220504
  Receipt Date: 20220504
  Transmission Date: 20220721
  Serious: No
  Sender: FDA-Public Use
  Company Number: US-ROCHE-2885868

PATIENT
  Age: 57 Year
  Sex: Female
  Weight: 68.100 kg

DRUGS (8)
  1. OCREVUS [Suspect]
     Active Substance: OCRELIZUMAB
     Indication: Multiple sclerosis
     Dosage: INITIAL DOSE GIVEN AS TWO SEPARATE 300 MG INFUSIONS 2 WEEKS APART?04/AUG/2021 RECENT DOSE
     Route: 042
     Dates: start: 202002
  2. BENADRYL [Concomitant]
     Active Substance: DIPHENHYDRAMINE HYDROCHLORIDE
     Route: 048
  3. MELATONIN [Concomitant]
     Active Substance: MELATONIN
  4. AZELASTINE HYDROCHLORIDE [Concomitant]
     Active Substance: AZELASTINE HYDROCHLORIDE
  5. AMLODIPINE [Concomitant]
     Active Substance: AMLODIPINE BESYLATE
     Route: 048
  6. NAPROXEN [Concomitant]
     Active Substance: NAPROXEN
     Route: 048
  7. LEVOTHYROXINE [Concomitant]
     Active Substance: LEVOTHYROXINE
     Route: 048
  8. ARMODAFINIL [Concomitant]
     Active Substance: ARMODAFINIL

REACTIONS (3)
  - Dizziness [Not Recovered/Not Resolved]
  - Musculoskeletal stiffness [Not Recovered/Not Resolved]
  - Off label use [Unknown]

NARRATIVE: CASE EVENT DATE: 20210801
